FAERS Safety Report 15208312 (Version 1)
Quarter: 2018Q3

REPORT INFORMATION
  Report Type: Spontaneous
  Country: GB (occurrence: GB)
  Receive Date: 20180727
  Receipt Date: 20180727
  Transmission Date: 20181010
  Serious: Yes (Other)
  Sender: FDA-Public Use
  Company Number: GB-TEVA-2018-GB-929842

PATIENT
  Age: 61 Year
  Sex: Female
  Weight: 70 kg

DRUGS (6)
  1. LORATADINE. [Concomitant]
     Active Substance: LORATADINE
     Dosage: 1 DOSAGE FORMS DAILY;
     Route: 065
     Dates: start: 20150206, end: 20180404
  2. PRAVASTATIN. [Concomitant]
     Active Substance: PRAVASTATIN
     Indication: BLOOD CHOLESTEROL INCREASED
     Dosage: 1 DOSAGE FORMS DAILY;
     Route: 065
     Dates: start: 20160804, end: 20180404
  3. FUSIDIC ACID [Concomitant]
     Active Substance: FUSIDIC ACID
     Dosage: 3 DOSAGE FORMS DAILY;
     Route: 065
     Dates: start: 20180604, end: 20180611
  4. SODIUM CROMOGLICATE [Concomitant]
     Active Substance: CROMOLYN SODIUM
     Dosage: 4 GTT DAILY;
     Route: 065
     Dates: start: 20150206, end: 20180404
  5. BECONASE AQ [Concomitant]
     Active Substance: BECLOMETHASONE DIPROPIONATE MONOHYDRATE
     Dosage: 4 DOSAGE FORMS DAILY; PUFFS
     Route: 065
     Dates: start: 20150206, end: 20180404
  6. ROSUVASTATIN. [Suspect]
     Active Substance: ROSUVASTATIN
     Route: 048
     Dates: start: 20180604, end: 20180618

REACTIONS (1)
  - Depressed mood [Recovering/Resolving]

NARRATIVE: CASE EVENT DATE: 20180615
